FAERS Safety Report 26123026 (Version 1)
Quarter: 2025Q4

REPORT INFORMATION
  Report Type: Report from Study
  Country: EG (occurrence: EG)
  Receive Date: 20251204
  Receipt Date: 20251204
  Transmission Date: 20260117
  Serious: Yes (Death, Other)
  Sender: PFIZER
  Company Number: EG-TAKEDA-2025TUS108527

PATIENT
  Sex: Male

DRUGS (2)
  1. ADCETRIS [Suspect]
     Active Substance: BRENTUXIMAB VEDOTIN
     Indication: Cutaneous T-cell lymphoma
     Dosage: 150 MG, EVERY 3 WEEKS
     Route: 042
     Dates: start: 20251001
  2. ADCETRIS [Suspect]
     Active Substance: BRENTUXIMAB VEDOTIN
     Dosage: 150 MG, EVERY 3 WEEKS
     Route: 042
     Dates: start: 20251022

REACTIONS (1)
  - Death [Fatal]

NARRATIVE: CASE EVENT DATE: 20251109
